FAERS Safety Report 14481829 (Version 12)
Quarter: 2018Q2

REPORT INFORMATION
  Report Type: Spontaneous
  Country: SK (occurrence: SK)
  Receive Date: 20180202
  Receipt Date: 20180501
  Transmission Date: 20180711
  Serious: Yes (Other)
  Sender: FDA-Public Use
  Company Number: SK-PFIZER INC-2018041927

PATIENT
  Age: 62 Year
  Sex: Male

DRUGS (7)
  1. GEMCITABINE HYDROCHLORIDE. [Suspect]
     Active Substance: GEMCITABINE HYDROCHLORIDE
     Indication: PANCREATIC CARCINOMA METASTATIC
     Dosage: 3000 MG/M2, CYCLIC (DAILY; ON 1., 8., 15 DAY EVERY 28 DAYS)
  2. GEMCITABINE HYDROCHLORIDE. [Suspect]
     Active Substance: GEMCITABINE HYDROCHLORIDE
     Dosage: 1000 MG/M2, 1ST, 8TH, 15TH DAY EVERY 28 DAYS
     Dates: start: 20160727
  3. DEXAMETHASONE. [Concomitant]
     Active Substance: DEXAMETHASONE
     Dosage: UNK
  4. NAB-PACLITAXEL [Suspect]
     Active Substance: PACLITAXEL
     Indication: PANCREATIC CARCINOMA METASTATIC
     Dosage: 375 MG/M2, CYCLIC (DAILY; ON 1., 8., 15 DAY EVERY 28 DAYS)
  5. G-CSF [Concomitant]
     Active Substance: GRANULOCYTE COLONY-STIMULATING FACTOR NOS
     Indication: PROPHYLAXIS
     Dosage: UNK
  6. NAB-PACLITAXEL [Suspect]
     Active Substance: PACLITAXEL
     Dosage: 375 MG/M2 DAILY; ON 1., 8., 15 DAY EVERY 28 DAYS
     Route: 041
     Dates: start: 20160727
  7. DEXAMETHASONUM [Concomitant]
     Active Substance: DEXAMETHASONE
     Indication: THROMBOCYTOPENIA
     Route: 065

REACTIONS (14)
  - Leukopenia [Unknown]
  - Nausea [Unknown]
  - Anaemia [Unknown]
  - Fatigue [Recovered/Resolved]
  - Dyspepsia [Recovered/Resolved]
  - Dysphonia [Unknown]
  - Vomiting [Unknown]
  - Neuropathy peripheral [Unknown]
  - Neutropenia [Unknown]
  - Musculoskeletal chest pain [Unknown]
  - Vocal cord paresis [Recovering/Resolving]
  - Pancytopenia [Unknown]
  - Thrombocytopenia [Unknown]
  - Gastrointestinal toxicity [Unknown]
